FAERS Safety Report 14673447 (Version 1)
Quarter: 2018Q1

REPORT INFORMATION
  Report Type: Spontaneous
  Country: ES (occurrence: ES)
  Receive Date: 20180323
  Receipt Date: 20180323
  Transmission Date: 20180509
  Serious: Yes (Other)
  Sender: FDA-Public Use
  Company Number: ES-CIPLA LTD.-2017ES27735

PATIENT

DRUGS (14)
  1. VALPROIC ACID. [Suspect]
     Active Substance: VALPROIC ACID
     Indication: PETIT MAL EPILEPSY
     Dosage: 1500 MG, PER DAY
     Route: 065
  2. PROGESTERONE. [Suspect]
     Active Substance: PROGESTERONE
     Indication: GENERALISED TONIC-CLONIC SEIZURE
     Dosage: 100 MG, TID
     Route: 065
  3. LEVETIRACETAM. [Suspect]
     Active Substance: LEVETIRACETAM
     Indication: GENERALISED TONIC-CLONIC SEIZURE
     Dosage: 1500 MG, PER DAY
     Route: 065
  4. TOPIRAMATE. [Suspect]
     Active Substance: TOPIRAMATE
     Indication: PETIT MAL EPILEPSY
     Dosage: 400 MG, PER DAY
     Route: 065
  5. CLOBAZAM [Concomitant]
     Active Substance: CLOBAZAM
     Indication: GENERALISED TONIC-CLONIC SEIZURE
     Dosage: 30 MG, PER DAY
     Route: 065
  6. VALPROIC ACID. [Suspect]
     Active Substance: VALPROIC ACID
     Indication: GENERALISED TONIC-CLONIC SEIZURE
     Dosage: 1000 MG, PER DAY
     Route: 065
  7. CLOBAZAM [Concomitant]
     Active Substance: CLOBAZAM
     Indication: PETIT MAL EPILEPSY
     Dosage: UNKNOWN
     Route: 065
  8. LAMOTRIGINE. [Concomitant]
     Active Substance: LAMOTRIGINE
     Indication: GENERALISED TONIC-CLONIC SEIZURE
     Dosage: 100 MG PER DAY
     Route: 065
  9. LAMOTRIGINE. [Concomitant]
     Active Substance: LAMOTRIGINE
     Indication: PETIT MAL EPILEPSY
  10. LEVETIRACETAM. [Suspect]
     Active Substance: LEVETIRACETAM
     Indication: PETIT MAL EPILEPSY
     Dosage: UNKNOWN
     Route: 065
  11. TOPIRAMATE. [Suspect]
     Active Substance: TOPIRAMATE
     Indication: GENERALISED TONIC-CLONIC SEIZURE
     Dosage: UNKNOWN
     Route: 065
  12. ZONISAMIDE. [Suspect]
     Active Substance: ZONISAMIDE
     Indication: PETIT MAL EPILEPSY
     Dosage: UNKNOWN
     Route: 065
  13. ZONISAMIDE. [Suspect]
     Active Substance: ZONISAMIDE
     Indication: GENERALISED TONIC-CLONIC SEIZURE
     Dosage: 500 MG, PER DAY
     Route: 065
  14. PROGESTERONE. [Suspect]
     Active Substance: PROGESTERONE
     Indication: PETIT MAL EPILEPSY
     Dosage: 100 MG/8 HOURS DURING THE SECOND HALF OF THE MENSTRUAL CYCLE
     Route: 065

REACTIONS (5)
  - Generalised tonic-clonic seizure [Unknown]
  - Suicidal behaviour [Unknown]
  - Petit mal epilepsy [Unknown]
  - Drug ineffective [Unknown]
  - Depressed mood [Unknown]
